FAERS Safety Report 8779787 (Version 2)
Quarter: 2013Q1

REPORT INFORMATION
  Report Type: Spontaneous
  Country: AU (occurrence: None)
  Receive Date: 20120829
  Receipt Date: 20120926
  Transmission Date: 20140127
  Serious: Yes (Other)
  Sender: FDA-Public Use
  Company Number: 2012AP002434

PATIENT
  Age: 60 Year
  Sex: Male

DRUGS (5)
  1. RAMIPRIL [Suspect]
     Indication: HYPERTENSION
     Dosage: CAP
     Route: 048
  2. APO-CLOPIDOGREL (CLOPIDOGREL SULFATE} [Concomitant]
  3. GENRX METOPROLOL (METOPROLOL TARTRATE) [Concomitant]
  4. GENRX FLUOXETINE (FLUOXETINE HYDROCHLORIDE) [Concomitant]
  5. ATORVASTATIN (ATORVASTATIN) [Concomitant]

REACTIONS (2)
  - Blood pressure increased [None]
  - Drug ineffective [None]
